FAERS Safety Report 4727819-1 (Version None)
Quarter: 2005Q3

REPORT INFORMATION
  Report Type: 
  Country: None (occurrence: None)
  Receive Date: 20050728
  Receipt Date: 20050311
  Transmission Date: 20060218
  Serious: Yes (Hospitalization)
  Sender: FDA-Public Use
  Company Number: US-MERCK-0503USA02801

PATIENT
  Age: 55 Year
  Sex: Male
  Weight: 134 kg

DRUGS (5)
  1. VIOXX [Suspect]
     Indication: OSTEOARTHRITIS
     Route: 048
     Dates: start: 20020101, end: 20030701
  2. VIOXX [Suspect]
     Route: 048
     Dates: start: 20030701, end: 20040801
  3. ADVAIR DISKUS 100/50 [Concomitant]
     Route: 065
  4. COMBIVENT [Concomitant]
     Route: 065
  5. ASPIRIN [Concomitant]
     Route: 065

REACTIONS (2)
  - BLOOD CHOLESTEROL ABNORMAL [None]
  - MYOCARDIAL INFARCTION [None]
